FAERS Safety Report 10563564 (Version 1)
Quarter: 2014Q4

REPORT INFORMATION
  Report Type: Spontaneous
  Country: US (occurrence: None)
  Receive Date: 20141103
  Receipt Date: 20141103
  Transmission Date: 20150529
  Serious: No
  Sender: FDA-Public Use
  Company Number: None

PATIENT
  Age: 37 Year
  Sex: Female
  Weight: 89.36 kg

DRUGS (1)
  1. CIPRO [Suspect]
     Active Substance: CIPROFLOXACIN HYDROCHLORIDE
     Indication: URINARY TRACT INFECTION
     Route: 048

REACTIONS (7)
  - Dizziness [None]
  - Tremor [None]
  - Malaise [None]
  - Tachycardia [None]
  - Headache [None]
  - Tachyarrhythmia [None]
  - Palpitations [None]

NARRATIVE: CASE EVENT DATE: 20141025
